FAERS Safety Report 8452446-2 (Version None)
Quarter: 2012Q2

REPORT INFORMATION
  Report Type: 
  Country: None (occurrence: None)
  Receive Date: 20120620
  Receipt Date: 20120426
  Transmission Date: 20120825
  Serious: No
  Sender: FDA-Public Use
  Company Number: US-VERTEX PHARMACEUTICALS INC.-AE-2012-005222

PATIENT
  Sex: Female

DRUGS (4)
  1. AMLODIPINE [Concomitant]
     Indication: HYPERTENSION
     Route: 048
  2. INCIVEK [Suspect]
     Indication: HEPATITIS C
     Route: 048
     Dates: start: 20120407
  3. RIBAVIRIN [Concomitant]
     Indication: HEPATITIS C
     Route: 048
     Dates: start: 20120407
  4. PEGASYS [Concomitant]
     Indication: HEPATITIS C
     Route: 058
     Dates: start: 20120407

REACTIONS (5)
  - FURUNCLE [None]
  - SKIN INFECTION [None]
  - CHILLS [None]
  - PYREXIA [None]
  - ASTHENIA [None]
